FAERS Safety Report 10720801 (Version 1)
Quarter: 2015Q1

REPORT INFORMATION
  Report Type: Spontaneous
  Country: US (occurrence: US)
  Receive Date: 20150119
  Receipt Date: 20150119
  Transmission Date: 20150721
  Serious: No
  Sender: FDA-Public Use
  Company Number: US-PFIZER INC-2015013706

PATIENT
  Age: 52 Year

DRUGS (1)
  1. EPLERENONE. [Suspect]
     Active Substance: EPLERENONE
     Dosage: UNK

REACTIONS (2)
  - Chest pain [Unknown]
  - Drug effect incomplete [Unknown]
